FAERS Safety Report 6718726-3 (Version None)
Quarter: 2010Q2

REPORT INFORMATION
  Report Type: 
  Country: None (occurrence: None)
  Receive Date: 20100505
  Receipt Date: 20100420
  Transmission Date: 20101027
  Serious: Yes (Death)
  Sender: FDA-Public Use
  Company Number: 2010001603

PATIENT
  Sex: Male

DRUGS (8)
  1. ERLOTINIB (ERLOTINIB) (TABLET) (ERLOTINIB) [Suspect]
     Indication: NON-SMALL CELL LUNG CANCER
     Dosage: (150 MG), ORAL
     Route: 048
     Dates: start: 20090318, end: 20091020
  2. BISOPROLOL FUMARATE [Concomitant]
  3. VALSARTAN [Concomitant]
  4. ASPIRIN [Concomitant]
  5. DOXAZOSIN MESYLATE [Concomitant]
  6. GEMCITABINE [Concomitant]
  7. CARBOPLATIN [Concomitant]
  8. PEMETREXED [Concomitant]

REACTIONS (1)
  - PNEUMONIA BACTERIAL [None]
